FAERS Safety Report 6916827-8 (Version None)
Quarter: 2010Q3

REPORT INFORMATION
  Report Type: 
  Country: None (occurrence: None)
  Receive Date: 20100810
  Receipt Date: 20080423
  Transmission Date: 20110219
  Serious: Yes (Hospitalization, Other)
  Sender: FDA-Public Use
  Company Number: PFIZER INC-2008035952

PATIENT
  Sex: Male
  Weight: 97.727 kg

DRUGS (1)
  1. CELEBREX [Suspect]
     Indication: ARTHRALGIA
     Dates: start: 20080402, end: 20080403

REACTIONS (3)
  - FATIGUE [None]
  - HYPERSOMNIA [None]
  - MYOCARDIAL INFARCTION [None]
